FAERS Safety Report 8738164 (Version 2)
Quarter: 2013Q4

REPORT INFORMATION
  Report Type: Spontaneous
  Country: MY (occurrence: MY)
  Receive Date: 20120823
  Receipt Date: 20131105
  Transmission Date: 20140711
  Serious: Yes (Other)
  Sender: FDA-Public Use
  Company Number: MY-009507513-1208MYS003418

PATIENT
  Age: 9 Month
  Sex: Male

DRUGS (2)
  1. TIENAM [Suspect]
     Indication: SEPSIS
     Dosage: 525 MG, QD
  2. AMIKACIN [Concomitant]

REACTIONS (1)
  - Epilepsy [Recovered/Resolved]
